FAERS Safety Report 6637810-6 (Version None)
Quarter: 2010Q1

REPORT INFORMATION
  Report Type: 
  Country: None (occurrence: None)
  Receive Date: 20100317
  Receipt Date: 20100302
  Transmission Date: 20100710
  Serious: Yes (Other)
  Sender: FDA-Public Use
  Company Number: PHHY2010US12671

PATIENT
  Age: 27 Year
  Sex: Male

DRUGS (5)
  1. TEGRETOL [Suspect]
     Indication: CONVULSION
     Dosage: 100 MG, BID
  2. DEPAKENE [Suspect]
     Indication: CONVULSION
     Dosage: 250 MG, BID
  3. CLARITIN [Suspect]
     Dosage: UNK
     Route: 048
     Dates: start: 20100213
  4. LEVOXYL [Concomitant]
  5. CLARINEX [Concomitant]

REACTIONS (5)
  - BALANCE DISORDER [None]
  - CRYING [None]
  - DEPRESSION [None]
  - DYSSTASIA [None]
  - PETIT MAL EPILEPSY [None]
